FAERS Safety Report 26024244 (Version 1)
Quarter: 2025Q4

REPORT INFORMATION
  Report Type: Report from Study
  Country: EU (occurrence: EU)
  Receive Date: 20251111
  Receipt Date: 20251111
  Transmission Date: 20260118
  Serious: Yes (Other)
  Sender: ALEXION PHARMACEUTICALS
  Company Number: EU-AstraZeneca-CH-00781615A

PATIENT

DRUGS (1)
  1. CAPIVASERTIB [Suspect]
     Active Substance: CAPIVASERTIB
     Indication: Breast cancer
     Route: 065

REACTIONS (3)
  - Gastrointestinal toxicity [Unknown]
  - Skin toxicity [Unknown]
  - Product use issue [Unknown]
